FAERS Safety Report 7053612-3 (Version None)
Quarter: 2010Q4

REPORT INFORMATION
  Report Type: 
  Country: None (occurrence: None)
  Receive Date: 20101020
  Receipt Date: 20101014
  Transmission Date: 20110411
  Serious: Yes (Other)
  Sender: FDA-Public Use
  Company Number: CN-ROCHE-733633

PATIENT
  Age: 53 Year
  Sex: Female
  Weight: 50 kg

DRUGS (12)
  1. HERCEPTIN [Suspect]
     Indication: BREAST CANCER RECURRENT
     Dosage: LOADING DOSE
     Route: 041
     Dates: start: 20100930
  2. XELODA [Suspect]
     Indication: BREAST CANCER RECURRENT
     Route: 048
     Dates: start: 20100929
  3. PAROXETINE HCL [Concomitant]
     Indication: DEPRESSION
     Route: 048
  4. PAROXETINE HCL [Concomitant]
     Route: 048
     Dates: start: 20100930
  5. ALPRAZOLAM [Concomitant]
     Indication: DEPRESSION
     Route: 048
  6. ALPRAZOLAM [Concomitant]
     Route: 048
     Dates: start: 20100930
  7. REMERON [Concomitant]
     Indication: DEPRESSION
     Route: 048
  8. REMERON [Concomitant]
     Route: 048
     Dates: start: 20100930
  9. DEANXIT [Concomitant]
     Indication: DEPRESSION
     Route: 048
  10. DEANXIT [Concomitant]
     Route: 048
     Dates: start: 20100930
  11. ZOPICLONE [Concomitant]
     Indication: INSOMNIA
     Route: 048
  12. ZOPICLONE [Concomitant]
     Route: 048
     Dates: start: 20100930

REACTIONS (2)
  - SUICIDAL IDEATION [None]
  - WHITE BLOOD CELL COUNT DECREASED [None]
